FAERS Safety Report 20136775 (Version 1)
Quarter: 2021Q4

REPORT INFORMATION
  Report Type: Spontaneous
  Country: US (occurrence: US)
  Receive Date: 20211201
  Receipt Date: 20211201
  Transmission Date: 20220303
  Serious: Yes (Other)
  Sender: FDA-Public Use
  Company Number: US-INCYTE CORPORATION-2021IN011054

PATIENT

DRUGS (1)
  1. JAKAFI [Suspect]
     Active Substance: RUXOLITINIB
     Indication: Polycythaemia vera
     Dosage: 20MG QAM, 10MG AT QHS
     Route: 048
     Dates: start: 20210202

REACTIONS (6)
  - Fall [Unknown]
  - Head injury [Unknown]
  - Fatigue [Unknown]
  - International normalised ratio abnormal [Unknown]
  - Red blood cell count increased [Recovered/Resolved]
  - White blood cell count abnormal [Unknown]
